FAERS Safety Report 8830952 (Version 1)
Quarter: 2012Q4

REPORT INFORMATION
  Report Type: 
  Country: US (occurrence: US)
  Receive Date: 20121008
  Receipt Date: 20121008
  Transmission Date: 20130627
  Serious: No
  Sender: FDA-Public Use
  Company Number: US-ASTRAZENECA-2012SE73977

PATIENT
  Age: 53 Year
  Sex: Female
  Weight: 90.3 kg

DRUGS (12)
  1. CRESTOR [Suspect]
     Route: 048
  2. MICARDIS [Suspect]
     Route: 048
  3. SINGULAIR [Suspect]
     Route: 048
  4. TRAMADOL HCL [Suspect]
     Dosage: 1 TABLET 2 TO 3 TIMES PER DAY AS NEEDED
     Route: 048
  5. ALPRAZOLAM [Suspect]
     Indication: INSOMNIA
     Dosage: 1 TABLET AT BEDTIME AS NEEDED
     Route: 048
  6. CELEXA [Suspect]
     Route: 048
  7. UBIDECARENONE [Suspect]
     Route: 048
  8. HYDROCHLOROTHIAZIDE [Suspect]
     Route: 048
  9. NIACIN [Suspect]
     Route: 048
  10. PROVENTIL HFA [Suspect]
     Indication: DYSPNOEA
     Dosage: 1 PUFF 2 TO 3 TIMES PER DAY AS NEEDED
  11. PROVENTIL HFA [Suspect]
     Indication: WHEEZING
     Dosage: 1 PUFF 2 TO 3 TIMES PER DAY AS NEEDED
  12. SYMBICORT [Concomitant]
     Dosage: 80-4.5 MCG, 2 PUFFS 2 TIMES PER DAY
     Route: 055

REACTIONS (2)
  - Drug hypersensitivity [Unknown]
  - Muscle spasms [Unknown]
